FAERS Safety Report 5208322-1 (Version None)
Quarter: 2007Q1

REPORT INFORMATION
  Report Type: 
  Country: None (occurrence: None)
  Receive Date: 20070110
  Receipt Date: 20070110
  Transmission Date: 20070707
  Serious: Yes (Hospitalization, Other)
  Sender: FDA-Public Use
  Company Number: None

PATIENT
  Age: 42 Year
  Sex: Male
  Weight: 90.7194 kg

DRUGS (2)
  1. MIRAPEX [Suspect]
     Indication: PARKINSON'S DISEASE
  2. MIRAPEX [Suspect]
     Indication: RESTLESS LEGS SYNDROME

REACTIONS (8)
  - DRUG DEPENDENCE [None]
  - ECONOMIC PROBLEM [None]
  - GAMBLING [None]
  - LEGAL PROBLEM [None]
  - LIBIDO INCREASED [None]
  - MARITAL PROBLEM [None]
  - NEGLECT OF PERSONAL APPEARANCE [None]
  - PSYCHIATRIC SYMPTOM [None]
